FAERS Safety Report 14017967 (Version 1)
Quarter: 2017Q3

REPORT INFORMATION
  Report Type: Spontaneous
  Country: AM (occurrence: AM)
  Receive Date: 20170928
  Receipt Date: 20170928
  Transmission Date: 20171128
  Serious: Yes (Hospitalization)
  Sender: FDA-Public Use
  Company Number: AM-ROCHE-1998618

PATIENT
  Age: 5 Year
  Sex: Male
  Weight: 17 kg

DRUGS (4)
  1. METHOTREXATE. [Suspect]
     Active Substance: METHOTREXATE
     Indication: STILL^S DISEASE
     Route: 048
     Dates: start: 20160820
  2. DICLOFENAC [Concomitant]
     Active Substance: DICLOFENAC
     Indication: STILL^S DISEASE
     Route: 030
     Dates: start: 201708
  3. ACTEMRA [Suspect]
     Active Substance: TOCILIZUMAB
     Indication: STILL^S DISEASE
     Route: 042
     Dates: start: 201612
  4. PREDNISOLONE. [Suspect]
     Active Substance: PREDNISOLONE
     Indication: STILL^S DISEASE
     Route: 048
     Dates: start: 201612, end: 201703

REACTIONS (3)
  - Splenomegaly [Recovered/Resolved]
  - Lymphadenopathy [Recovered/Resolved]
  - Joint swelling [Recovered/Resolved]

NARRATIVE: CASE EVENT DATE: 201707
